FAERS Safety Report 8409912 (Version 2)
Quarter: 2013Q1

REPORT INFORMATION
  Report Type: Spontaneous
  Country: US (occurrence: US)
  Receive Date: 20120216
  Receipt Date: 20130322
  Transmission Date: 20140127
  Serious: Yes (Other)
  Sender: FDA-Public Use
  Company Number: US-PFIZER INC-2012039730

PATIENT
  Age: 17 Year
  Sex: Male

DRUGS (4)
  1. CELEXA [Suspect]
     Indication: DEPRESSION
     Dosage: 20 MG, UNK
     Dates: start: 20110526
  2. ACCUTANE [Concomitant]
  3. LEVOTHYROXINE [Concomitant]
     Dosage: UNK
     Dates: start: 2008
  4. HYDROXYZINE [Concomitant]
     Dosage: 50 MG, UNK
     Dates: start: 20110706

REACTIONS (3)
  - Homicide [Unknown]
  - Thinking abnormal [Unknown]
  - Imprisonment [Unknown]
